FAERS Safety Report 5999916-4 (Version None)
Quarter: 2008Q4

REPORT INFORMATION
  Report Type: 
  Country: None (occurrence: None)
  Receive Date: 20081215
  Receipt Date: 20081204
  Transmission Date: 20090506
  Serious: Yes (Hospitalization, Other)
  Sender: FDA-Public Use
  Company Number: PHBS2008ES06597

PATIENT
  Age: 46 Year
  Sex: Female

DRUGS (2)
  1. IMATINIB MESYLATE [Suspect]
     Dosage: 200 MG/DAY
  2. METHYLPREDNISOLONE 16MG TAB [Suspect]
     Dosage: 1 MG/KG/DAY

REACTIONS (8)
  - ANAEMIA [None]
  - ELECTROCARDIOGRAM QRS COMPLEX ABNORMAL [None]
  - INTRACARDIAC MASS [None]
  - INTRACARDIAC THROMBUS [None]
  - LEFT VENTRICULAR DYSFUNCTION [None]
  - PANCREATIC ENZYMES INCREASED [None]
  - SURGERY [None]
  - THROMBOCYTOPENIA [None]
